FAERS Safety Report 22633923 (Version 1)
Quarter: 2023Q2

REPORT INFORMATION
  Report Type: Spontaneous
  Country: JP (occurrence: JP)
  Receive Date: 20230623
  Receipt Date: 20230623
  Transmission Date: 20230722
  Serious: Yes (Hospitalization)
  Sender: FDA-Public Use
  Company Number: JP-STRIDES ARCOLAB LIMITED-2023SP009908

PATIENT
  Age: 54 Year
  Sex: Male

DRUGS (1)
  1. HYDROCORTISONE [Suspect]
     Active Substance: HYDROCORTISONE
     Indication: Hypopituitarism
     Dosage: 20 MILLIGRAM, UNKNOWN
     Route: 065

REACTIONS (3)
  - Intestinal perforation [Unknown]
  - Peritonitis [Unknown]
  - Clostridium bacteraemia [Unknown]
